FAERS Safety Report 24689943 (Version 1)
Quarter: 2024Q4

REPORT INFORMATION
  Report Type: Spontaneous
  Country: CA (occurrence: CA)
  Receive Date: 20241203
  Receipt Date: 20241203
  Transmission Date: 20250114
  Serious: Yes (Hospitalization)
  Sender: ROCHE
  Company Number: CA-ROCHE-10000146053

PATIENT
  Age: 53 Year
  Sex: Female
  Weight: 63 kg

DRUGS (18)
  1. CAPECITABINE [Suspect]
     Active Substance: CAPECITABINE
     Indication: Breast cancer
     Route: 048
  2. KADCYLA [Suspect]
     Active Substance: ADO-TRASTUZUMAB EMTANSINE
     Indication: Breast cancer metastatic
     Route: 042
  3. KADCYLA [Suspect]
     Active Substance: ADO-TRASTUZUMAB EMTANSINE
     Route: 042
  4. TRASTUZUMAB [Suspect]
     Active Substance: TRASTUZUMAB
     Indication: Breast cancer metastatic
     Route: 042
  5. TRASTUZUMAB [Suspect]
     Active Substance: TRASTUZUMAB
     Route: 042
  6. TRASTUZUMAB [Suspect]
     Active Substance: TRASTUZUMAB
     Route: 042
  7. TRASTUZUMAB [Suspect]
     Active Substance: TRASTUZUMAB
     Route: 042
  8. TRASTUZUMAB [Suspect]
     Active Substance: TRASTUZUMAB
     Route: 042
  9. AMLODIPINE [Concomitant]
     Active Substance: AMLODIPINE BESYLATE
  10. ATIVAN [Concomitant]
     Active Substance: LORAZEPAM
  11. CISPLATIN [Concomitant]
     Active Substance: CISPLATIN
     Route: 042
  12. GEMCITABINE [Concomitant]
     Active Substance: GEMCITABINE
  13. MELATONIN [Concomitant]
     Active Substance: MELATONIN
  14. PAMIDRONATE DISODIUM [Concomitant]
     Active Substance: PAMIDRONATE DISODIUM
  15. ROSUVASTATIN CALCIUM [Concomitant]
     Active Substance: ROSUVASTATIN CALCIUM
  16. SERTRALINE HYDROCHLORIDE [Concomitant]
     Active Substance: SERTRALINE HYDROCHLORIDE
  17. ZOMETA [Concomitant]
     Active Substance: ZOLEDRONIC ACID
     Route: 042
  18. ZOPICLONE [Concomitant]
     Active Substance: ZOPICLONE

REACTIONS (39)
  - Abdominal pain [Unknown]
  - Anxiety [Unknown]
  - Asthenia [Unknown]
  - Back pain [Unknown]
  - Blood cholesterol increased [Unknown]
  - Blood pressure increased [Unknown]
  - Blood pressure systolic increased [Unknown]
  - Candida infection [Unknown]
  - Complication associated with device [Unknown]
  - Computerised tomogram abnormal [Unknown]
  - Contusion [Unknown]
  - Cough [Unknown]
  - Diarrhoea [Unknown]
  - Ear pain [Unknown]
  - Emotional disorder [Unknown]
  - Fatigue [Unknown]
  - Headache [Unknown]
  - Hepatic mass [Unknown]
  - Hypersensitivity [Unknown]
  - Hypertension [Unknown]
  - Inflammation [Unknown]
  - Influenza [Unknown]
  - Liver disorder [Unknown]
  - Myalgia [Unknown]
  - Nasopharyngitis [Unknown]
  - Nausea [Unknown]
  - Nephrolithiasis [Unknown]
  - Nervous system disorder [Unknown]
  - Ocular hyperaemia [Unknown]
  - Oral herpes [Unknown]
  - Pain [Unknown]
  - Psychotic disorder [Unknown]
  - Sinusitis [Unknown]
  - Stomatitis [Unknown]
  - Stress [Unknown]
  - Vomiting [Unknown]
  - Water intoxication [Unknown]
  - Weight decreased [Unknown]
  - Weight increased [Unknown]
